FAERS Safety Report 25729730 (Version 1)
Quarter: 2025Q3

REPORT INFORMATION
  Report Type: Spontaneous
  Country: US (occurrence: None)
  Receive Date: 20250826
  Receipt Date: 20250826
  Transmission Date: 20251020
  Serious: No
  Sender: FDA-CTU
  Company Number: None

PATIENT
  Age: 20 Month
  Sex: Female
  Weight: 14.2 kg

DRUGS (1)
  1. HEMANGEOL [Suspect]
     Active Substance: PROPRANOLOL HYDROCHLORIDE
     Indication: Haemangioma
     Dosage: 303 ML BID ORAL ?
     Route: 048
     Dates: start: 20250630

REACTIONS (6)
  - Peripheral coldness [None]
  - Appetite disorder [None]
  - Somnolence [None]
  - Abnormal behaviour [None]
  - Somnolence [None]
  - Somnolence [None]

NARRATIVE: CASE EVENT DATE: 20250101
